FAERS Safety Report 5941795-5 (Version None)
Quarter: 2008Q4

REPORT INFORMATION
  Report Type: 
  Country: None (occurrence: None)
  Receive Date: 20081105
  Receipt Date: 20081029
  Transmission Date: 20090506
  Serious: Yes (Hospitalization, Other)
  Sender: FDA-Public Use
  Company Number: PHHY2008JP21058

PATIENT
  Sex: Male

DRUGS (2)
  1. LOCHOL [Suspect]
     Indication: HYPERCHOLESTEROLAEMIA
     Dosage: 30 MG
     Route: 048
     Dates: start: 20080301
  2. HERBAL EXTRACTS NOS [Suspect]
     Dosage: UNK
     Route: 065

REACTIONS (3)
  - BLOOD TRIGLYCERIDES INCREASED [None]
  - BRONCHOSCOPY [None]
  - INTERSTITIAL LUNG DISEASE [None]
